FAERS Safety Report 5149441-8 (Version None)
Quarter: 2006Q4

REPORT INFORMATION
  Report Type: 
  Country: None (occurrence: None)
  Receive Date: 20061113
  Receipt Date: 20060113
  Transmission Date: 20070319
  Serious: Yes (Other)
  Sender: FDA-Public Use
  Company Number: 432792

PATIENT
  Sex: Female

DRUGS (1)
  1. COREG [Suspect]
     Route: 065

REACTIONS (3)
  - FLUID RETENTION [None]
  - HYPOKALAEMIA [None]
  - OEDEMA PERIPHERAL [None]
